FAERS Safety Report 6842567-X (Version None)
Quarter: 2010Q3

REPORT INFORMATION
  Report Type: 
  Country: None (occurrence: None)
  Receive Date: 20100714
  Receipt Date: 20070730
  Transmission Date: 20110219
  Serious: No
  Sender: FDA-Public Use
  Company Number: US-PFIZER INC-2007064853

PATIENT
  Sex: Female
  Weight: 66.818 kg

DRUGS (4)
  1. CHANTIX [Suspect]
     Indication: SMOKING CESSATION THERAPY
     Dates: start: 20070101
  2. MECLOZINE HYDROCHLORIDE [Concomitant]
     Indication: MENIERE'S DISEASE
  3. MULTI-VITAMINS [Concomitant]
  4. VITAMIN C [Concomitant]

REACTIONS (2)
  - NAUSEA [None]
  - VOMITING [None]
